FAERS Safety Report 16611016 (Version 2)
Quarter: 2019Q3

REPORT INFORMATION
  Report Type: Report from Study
  Country: US (occurrence: US)
  Receive Date: 20190722
  Receipt Date: 20190904
  Transmission Date: 20191004
  Serious: No
  Sender: FDA-Public Use
  Company Number: US-009507513-1907USA004754

PATIENT
  Sex: Male

DRUGS (1)
  1. PEMBROLIZUMAB. [Suspect]
     Active Substance: PEMBROLIZUMAB

REACTIONS (5)
  - Speech disorder [Unknown]
  - Adverse event [Unknown]
  - Unevaluable event [Unknown]
  - Feeling abnormal [Unknown]
  - Fatigue [Unknown]
